FAERS Safety Report 14020470 (Version 2)
Quarter: 2017Q4

REPORT INFORMATION
  Report Type: Spontaneous
  Country: RU (occurrence: RU)
  Receive Date: 20170928
  Receipt Date: 20171107
  Transmission Date: 20180321
  Serious: Yes (Death, Other)
  Sender: FDA-Public Use
  Company Number: RU-009507513-1709RUS013325

PATIENT
  Age: 3 Year
  Sex: Female

DRUGS (4)
  1. MICAFUNGIN [Concomitant]
     Active Substance: MICAFUNGIN
     Indication: FUNGAL INFECTION
  2. AMPHOTERICIN B. [Concomitant]
     Active Substance: AMPHOTERICIN B
     Indication: FUNGAL INFECTION
  3. VFEND [Concomitant]
     Active Substance: VORICONAZOLE
     Indication: FUNGAL INFECTION
  4. NOXAFIL [Suspect]
     Active Substance: POSACONAZOLE
     Indication: FUNGAL INFECTION
     Route: 048

REACTIONS (8)
  - Drug ineffective [Unknown]
  - Sepsis [Unknown]
  - Hepatomegaly [Unknown]
  - Multiple organ dysfunction syndrome [Unknown]
  - Aspergillus infection [Fatal]
  - Disseminated intravascular coagulation [Unknown]
  - Renal cortical necrosis [Unknown]
  - Product use issue [Unknown]
